FAERS Safety Report 6057774-6 (Version None)
Quarter: 2009Q1

REPORT INFORMATION
  Report Type: 
  Country: None (occurrence: None)
  Receive Date: 20090129
  Receipt Date: 20090121
  Transmission Date: 20090719
  Serious: Yes (Other)
  Sender: FDA-Public Use
  Company Number: PHHY2009JP02471

PATIENT
  Age: 8 Year
  Sex: Male

DRUGS (2)
  1. CYCLOSPORINE [Suspect]
     Indication: BONE MARROW TRANSPLANT
  2. METHOTREXATE [Suspect]
     Indication: BONE MARROW TRANSPLANT

REACTIONS (2)
  - CHRONIC GRAFT VERSUS HOST DISEASE [None]
  - NODULAR REGENERATIVE HYPERPLASIA [None]
